FAERS Safety Report 8559507-8 (Version None)
Quarter: 2012Q2

REPORT INFORMATION
  Report Type: 
  Country: None (occurrence: None)
  Receive Date: 20120418
  Receipt Date: 20110405
  Transmission Date: 20120825
  Serious: Yes (Other)
  Sender: FDA-Public Use
  Company Number: PHHY2011US28328

PATIENT
  Age: 86 Year
  Sex: Male

DRUGS (1)
  1. DIOVAN HCT [Suspect]
     Dosage: 1 DF, QD, 160/12/5 MG, ORAL
     Route: 048

REACTIONS (1)
  - BLOOD PRESSURE INCREASED [None]
